FAERS Safety Report 6174765-5 (Version None)
Quarter: 2009Q2

REPORT INFORMATION
  Report Type: 
  Country: None (occurrence: None)
  Receive Date: 20090430
  Receipt Date: 20080916
  Transmission Date: 20091009
  Serious: No
  Sender: FDA-Public Use
  Company Number: US-ASTRAZENECA-2008UW19274

PATIENT
  Age: 65 Year
  Sex: Female
  Weight: 74.8 kg

DRUGS (6)
  1. NEXIUM [Suspect]
     Indication: DYSPEPSIA
     Dosage: UNSURE OF DOSE-DAILY
     Route: 048
  2. DIOVAN [Concomitant]
  3. VALIUM [Concomitant]
  4. VALTREX [Concomitant]
  5. DETROL [Concomitant]
  6. VITAMINS [Concomitant]

REACTIONS (11)
  - ABDOMINAL DISTENSION [None]
  - BREAST TENDERNESS [None]
  - CHEST DISCOMFORT [None]
  - COUGH [None]
  - DIARRHOEA [None]
  - DRY MOUTH [None]
  - HOT FLUSH [None]
  - NIPPLE PAIN [None]
  - RASH PRURITIC [None]
  - TONGUE DISORDER [None]
  - URINARY TRACT INFECTION [None]
